FAERS Safety Report 5371560-1 (Version None)
Quarter: 2007Q2

REPORT INFORMATION
  Report Type: 
  Country: None (occurrence: None)
  Receive Date: 20070625
  Receipt Date: 20070625
  Transmission Date: 20071010
  Serious: Yes (Hospitalization)
  Sender: FDA-Public Use
  Company Number: None

PATIENT
  Age: 63 Year
  Sex: Female

DRUGS (7)
  1. ABRAXANE [Suspect]
     Indication: BREAST CANCER
     Dosage: 175MG WEEKLY IV
     Route: 042
     Dates: start: 20070528
  2. ACYCLOVIR [Concomitant]
  3. COUMADIN [Concomitant]
  4. TYLENOL [Concomitant]
  5. IBUPROFEN [Concomitant]
  6. OMEPRAZOLE [Concomitant]
  7. VITAMIN B6 [Concomitant]

REACTIONS (7)
  - ANAEMIA [None]
  - APHTHOUS STOMATITIS [None]
  - HEADACHE [None]
  - NAUSEA [None]
  - PNEUMONIA [None]
  - SINUSITIS [None]
  - TOOTHACHE [None]
